FAERS Safety Report 15276824 (Version 1)
Quarter: 2018Q3

REPORT INFORMATION
  Report Type: Spontaneous
  Country: US (occurrence: US)
  Receive Date: 20180814
  Receipt Date: 20180814
  Transmission Date: 20181010
  Serious: Yes (Other)
  Sender: FDA-Public Use
  Company Number: US-FRESENIUS KABI-FK201808672

PATIENT

DRUGS (14)
  1. BEVACIZUMAB. [Suspect]
     Active Substance: BEVACIZUMAB
     Indication: BRAIN NEOPLASM
  2. CYCLOPHOSPHAMIDE. [Suspect]
     Active Substance: CYCLOPHOSPHAMIDE
     Indication: BRAIN NEOPLASM
  3. CYTARABINE. [Suspect]
     Active Substance: CYTARABINE
     Indication: BRAIN NEOPLASM
  4. CELECOXIB. [Suspect]
     Active Substance: CELECOXIB
     Indication: BRAIN NEOPLASM
  5. FENOFIBRATE. [Suspect]
     Active Substance: FENOFIBRATE
     Indication: EPENDYMOMA MALIGNANT
     Route: 065
  6. BEVACIZUMAB. [Suspect]
     Active Substance: BEVACIZUMAB
     Indication: EPENDYMOMA MALIGNANT
     Route: 065
  7. FENOFIBRATE. [Suspect]
     Active Substance: FENOFIBRATE
     Indication: BRAIN NEOPLASM
  8. CYTARABINE. [Suspect]
     Active Substance: CYTARABINE
     Indication: EPENDYMOMA MALIGNANT
     Route: 065
  9. ETOPOSIDE (MANUFACTURER UNKNOWN) [Suspect]
     Active Substance: ETOPOSIDE
     Indication: BRAIN NEOPLASM
  10. THALIDOMIDE [Suspect]
     Active Substance: THALIDOMIDE
     Indication: EPENDYMOMA MALIGNANT
     Route: 065
  11. THALIDOMIDE [Suspect]
     Active Substance: THALIDOMIDE
     Indication: BRAIN NEOPLASM
  12. ETOPOSIDE (MANUFACTURER UNKNOWN) [Suspect]
     Active Substance: ETOPOSIDE
     Indication: EPENDYMOMA MALIGNANT
     Route: 065
  13. CELECOXIB. [Suspect]
     Active Substance: CELECOXIB
     Indication: EPENDYMOMA MALIGNANT
     Route: 065
  14. CYCLOPHOSPHAMIDE. [Suspect]
     Active Substance: CYCLOPHOSPHAMIDE
     Indication: EPENDYMOMA MALIGNANT
     Route: 065

REACTIONS (1)
  - Developmental regression [Unknown]
